FAERS Safety Report 15982112 (Version 1)
Quarter: 2019Q1

REPORT INFORMATION
  Report Type: Spontaneous
  Country: US (occurrence: US)
  Receive Date: 20190219
  Receipt Date: 20190219
  Transmission Date: 20190418
  Serious: Yes (Other)
  Sender: FDA-Public Use
  Company Number: US-PFIZER INC-2019017998

PATIENT

DRUGS (4)
  1. KETAMINE HCL [Suspect]
     Active Substance: KETAMINE HYDROCHLORIDE
     Dosage: 60 MG, UNK
  2. METHOHEXITAL [Suspect]
     Active Substance: METHOHEXITAL
     Dosage: 20 MG, UNK
  3. QUELICIN [Suspect]
     Active Substance: SUCCINYLCHOLINE CHLORIDE
     Dosage: 100 MG, UNK
  4. QUELICIN [Suspect]
     Active Substance: SUCCINYLCHOLINE CHLORIDE
     Dosage: 100 MG, UNK

REACTIONS (2)
  - Seizure [Unknown]
  - Drug effect incomplete [Unknown]
